FAERS Safety Report 7646225-3 (Version None)
Quarter: 2011Q3

REPORT INFORMATION
  Report Type: 
  Country: None (occurrence: None)
  Receive Date: 20110801
  Receipt Date: 20110722
  Transmission Date: 20111222
  Serious: No
  Sender: FDA-Public Use
  Company Number: US-BIOGENIDEC-2011BI027625

PATIENT
  Age: 47 Year
  Sex: Female

DRUGS (1)
  1. TYSABRI [Suspect]
     Indication: MULTIPLE SCLEROSIS
     Route: 042
     Dates: start: 20100225

REACTIONS (13)
  - STRESS [None]
  - GAIT DISTURBANCE [None]
  - MUSCULAR WEAKNESS [None]
  - BAND SENSATION [None]
  - DEHYDRATION [None]
  - FATIGUE [None]
  - PERONEAL NERVE PALSY [None]
  - ASTHENIA [None]
  - SENSORY DISTURBANCE [None]
  - POOR VENOUS ACCESS [None]
  - TEMPERATURE INTOLERANCE [None]
  - BALANCE DISORDER [None]
  - FALL [None]
